FAERS Safety Report 8592085-6 (Version None)
Quarter: 2012Q3

REPORT INFORMATION
  Report Type: 
  Country: None (occurrence: None)
  Receive Date: 20120814
  Receipt Date: 20120809
  Transmission Date: 20120928
  Serious: Yes (Other)
  Sender: FDA-Public Use
  Company Number: PR-ABBOTT-12P-131-0936130-00

PATIENT
  Sex: Female
  Weight: 63.56 kg

DRUGS (8)
  1. HUMALOG [Concomitant]
     Indication: DIABETES MELLITUS
     Dosage: 75/25, 15U IN MORNING, 7U AT NIGHT
     Route: 058
  2. FERROUS SULFATE TAB [Concomitant]
     Indication: SUPPLEMENTATION THERAPY
     Route: 048
  3. RANITIDINE [Concomitant]
     Indication: GASTRITIS
     Dosage: AT BEDTIME
     Route: 048
  4. CYANOCOBALAMIN [Concomitant]
     Indication: SUPPLEMENTATION THERAPY
     Route: 030
  5. HUMIRA [Suspect]
     Indication: RHEUMATOID ARTHRITIS
     Route: 058
     Dates: end: 20120501
  6. ENALAPRIL MALEATE [Concomitant]
     Indication: HYPERTENSION
     Route: 048
  7. GEMFIBROZIL [Concomitant]
     Indication: BLOOD CHOLESTEROL INCREASED
     Route: 048
  8. METHYLPREDNISOLONE [Concomitant]
     Indication: DERMATOMYOSITIS
     Route: 048

REACTIONS (6)
  - EAR PAIN [None]
  - OROPHARYNGEAL PAIN [None]
  - BLOOD GLUCOSE DECREASED [None]
  - VULVOVAGINAL PRURITUS [None]
  - HYPERSENSITIVITY [None]
  - URINARY TRACT INFECTION BACTERIAL [None]
